APPROVED DRUG PRODUCT: KRAZATI
Active Ingredient: ADAGRASIB
Strength: 200MG
Dosage Form/Route: TABLET;ORAL
Application: N216340 | Product #001
Applicant: BRISTOL MYERS SQUIBB CO
Approved: Dec 12, 2022 | RLD: Yes | RS: Yes | Type: RX

PATENTS:
Patent 12336995 | Expires: Feb 5, 2041
Patent 10689377 | Expires: May 17, 2037
Patent 10689377 | Expires: May 17, 2037
Patent 12281113 | Expires: Sep 10, 2041
Patent 12383503 | Expires: Aug 21, 2043

EXCLUSIVITY:
Code: NCE | Date: Dec 12, 2027
Code: ODE-352 | Date: Dec 12, 2029